FAERS Safety Report 19244290 (Version 1)
Quarter: 2021Q2

REPORT INFORMATION
  Report Type: Spontaneous
  Country: GB (occurrence: GB)
  Receive Date: 20210512
  Receipt Date: 20210512
  Transmission Date: 20210717
  Serious: Yes (Other)
  Sender: FDA-Public Use
  Company Number: GB-ACCORD-224657

PATIENT
  Sex: Male

DRUGS (11)
  1. OLANZAPINE. [Concomitant]
     Active Substance: OLANZAPINE
     Dosage: 15 MG TABLETS ONE TO BE TAKEN AT NIGHT 28 TABLET
  2. SALBUTAMOL [Concomitant]
     Active Substance: ALBUTEROL
     Dosage: 100 MICROGRAMS/DOSE INHALER CFC FREE 2 PUFFS WHEN REQUIRED
  3. ASPIRIN. [Concomitant]
     Active Substance: ASPIRIN
     Dosage: 75 MG DISPERSIBLE TABLETS ONE TO BE TAKEN EACH DAY
  4. FUROSEMIDE. [Concomitant]
     Active Substance: FUROSEMIDE
     Dosage: 20 MG TABLETS ONE TO BE TAKEN EACH MORNING
  5. OMEPRAZOLE. [Concomitant]
     Active Substance: OMEPRAZOLE
     Dosage: 20 MG GASTRO?RESISTANT CAPSULES ONE TO BE TAKEN TWICE A DAY 56 CAPSULE
  6. QUINIDINE [Concomitant]
     Active Substance: QUINIDINE
     Dosage: 300 MG TABLETS TO BE TAKEN AT 2PM ? ONCE A DAY 28 TABLET
  7. ATORVASTATIN/ATORVASTATIN CALCIUM [Suspect]
     Active Substance: ATORVASTATIN CALCIUM
     Indication: PRODUCT USED FOR UNKNOWN INDICATION
     Dosage: 10 MG TABLETS ONE TO BE TAKEN EACH NIGHT
  8. DIHYDROCODEINE BITARTRATE/PARACETAMOL [Concomitant]
     Active Substance: ACETAMINOPHEN\DIHYDROCODEINE BITARTRATE
     Dosage: 10MG/500 MG TABLETS ONE TO BE TAKEN FOUR TIMES A DAY
  9. RILUZOLE. [Concomitant]
     Active Substance: RILUZOLE
     Dosage: 50 MG TABLETS ONE TO BE TAKEN IN THE MORNING AND ONE AT NIGHT
  10. SENNA ALEXANDRINA [Concomitant]
     Active Substance: SENNA LEAF
     Dosage: 7.5 MG TABLETS TWO TO BE TAKEN AT NIGHT
  11. CETIRIZINE [Concomitant]
     Active Substance: CETIRIZINE HYDROCHLORIDE
     Dosage: 10 MG TABLETS ONE TO BE TAKEN EACH DAY IN THE AFTRENOON

REACTIONS (1)
  - Alopecia [Unknown]
